FAERS Safety Report 9209208 (Version 1)
Quarter: 2013Q2

REPORT INFORMATION
  Report Type: Spontaneous
  Country: CA (occurrence: CA)
  Receive Date: 20130404
  Receipt Date: 20130404
  Transmission Date: 20140414
  Serious: Yes (Hospitalization)
  Sender: FDA-Public Use
  Company Number: CA-BAYER-2013-039042

PATIENT
  Age: 21 Year
  Sex: Female

DRUGS (2)
  1. YAZ [Suspect]
  2. NOROXIN [Concomitant]
     Dosage: UNK

REACTIONS (2)
  - Cholecystitis acute [None]
  - Bile duct stone [None]
